FAERS Safety Report 8299578-X (Version None)
Quarter: 2012Q2

REPORT INFORMATION
  Report Type: 
  Country: None (occurrence: None)
  Receive Date: 20120419
  Receipt Date: 20120412
  Transmission Date: 20120825
  Serious: Yes (Hospitalization)
  Sender: FDA-Public Use
  Company Number: US-GLAXOSMITHKLINE-A0914641A

PATIENT
  Age: 57 Year
  Sex: Male

DRUGS (9)
  1. AVANDIA [Suspect]
     Indication: DIABETES MELLITUS
     Dosage: 8MG PER DAY
     Route: 048
     Dates: start: 20000101
  2. METOPROLOL TARTRATE [Concomitant]
  3. CAPTOPRIL [Concomitant]
  4. GABAPENTIN [Concomitant]
  5. CITALOPRAM [Concomitant]
  6. LOVASTATIN [Concomitant]
  7. TRAZODONE HCL [Concomitant]
  8. FOSINOPRIL SODIUM [Concomitant]
  9. PAROXETINE [Concomitant]

REACTIONS (2)
  - CEREBROVASCULAR ACCIDENT [None]
  - CARDIAC FAILURE CONGESTIVE [None]
